FAERS Safety Report 18635609 (Version 1)
Quarter: 2020Q4

REPORT INFORMATION
  Report Type: Spontaneous
  Country: US (occurrence: US)
  Receive Date: 20201218
  Receipt Date: 20201218
  Transmission Date: 20210114
  Serious: No
  Sender: FDA-Public Use
  Company Number: US-TEVA-2020-US-1860141

PATIENT
  Sex: Female

DRUGS (11)
  1. CALCITRIOL. [Suspect]
     Active Substance: CALCITRIOL
     Route: 065
  2. TOPROL XL [Concomitant]
     Active Substance: METOPROLOL SUCCINATE
  3. LENVIMA EISAI [Concomitant]
     Route: 048
     Dates: start: 20161211
  4. LENVIMA EISAI [Concomitant]
     Dosage: LENVIMA DOSE WAS REDUCED FROM 14MG TO 10 MG JUL 20TH
     Route: 065
  5. VERAPAMIL [Concomitant]
     Active Substance: VERAPAMIL HYDROCHLORIDE
  6. KETOPROFEN/LIDOCAINE [Concomitant]
     Route: 061
  7. VERAPAMIL HCL [Concomitant]
     Active Substance: VERAPAMIL HYDROCHLORIDE
     Route: 065
  8. ENALAPRIL [Concomitant]
     Active Substance: ENALAPRIL
  9. IMODIUM A-D [Concomitant]
     Active Substance: LOPERAMIDE HYDROCHLORIDE
     Route: 065
  10. LASIX [Concomitant]
     Active Substance: FUROSEMIDE
     Dosage: 20 MILLIGRAM DAILY;
  11. GABAPENTIN. [Concomitant]
     Active Substance: GABAPENTIN
     Route: 061

REACTIONS (1)
  - Blood calcium increased [Recovered/Resolved]
